FAERS Safety Report 7988244-3 (Version None)
Quarter: 2011Q4

REPORT INFORMATION
  Report Type: 
  Country: None (occurrence: None)
  Receive Date: 20111216
  Receipt Date: 20110610
  Transmission Date: 20120403
  Serious: Yes (Hospitalization)
  Sender: FDA-Public Use
  Company Number: US-BRISTOL-MYERS SQUIBB COMPANY-15826712

PATIENT
  Age: 17 Year
  Sex: Male

DRUGS (4)
  1. DEPAKOTE [Suspect]
     Indication: BIPOLAR I DISORDER
  2. HALOPROGIN [Suspect]
     Indication: BIPOLAR I DISORDER
  3. LITHIUM CARBONATE [Suspect]
     Indication: BIPOLAR I DISORDER
  4. ABILIFY [Suspect]
     Indication: BIPOLAR I DISORDER
     Route: 048

REACTIONS (1)
  - NEUROLEPTIC MALIGNANT SYNDROME [None]
